FAERS Safety Report 24816355 (Version 1)
Quarter: 2025Q1

REPORT INFORMATION
  Report Type: Spontaneous
  Country: US (occurrence: US)
  Receive Date: 20250107
  Receipt Date: 20250107
  Transmission Date: 20250408
  Serious: Yes (Hospitalization)
  Sender: PERRIGO
  Company Number: US-MLMSERVICE-20241226-PI324139-00030-1

PATIENT
  Age: 49 Year
  Sex: Female

DRUGS (3)
  1. IBUPROFEN [Suspect]
     Active Substance: IBUPROFEN
     Indication: Uterine leiomyoma
     Route: 048
  2. IBUPROFEN [Suspect]
     Active Substance: IBUPROFEN
     Indication: Pain management
  3. OXYCODONE [Concomitant]
     Active Substance: OXYCODONE
     Indication: Pain management
     Route: 065

REACTIONS (2)
  - Autoimmune hepatitis [Unknown]
  - Acute on chronic liver failure [Unknown]
